FAERS Safety Report 11279263 (Version 2)
Quarter: 2015Q4

REPORT INFORMATION
  Report Type: Spontaneous
  Country: US (occurrence: US)
  Receive Date: 20150717
  Receipt Date: 20151001
  Transmission Date: 20160304
  Serious: No
  Sender: FDA-Public Use
  Company Number: US-PFIZER INC-2015234415

PATIENT
  Age: 74 Year
  Sex: Male
  Weight: 87.98 kg

DRUGS (17)
  1. TAMSULOSIN [Concomitant]
     Active Substance: TAMSULOSIN
     Dosage: 0.4 MG, UNK
  2. CALCITROL [Concomitant]
     Active Substance: CALCITRIOL
     Dosage: 0.25
  3. ALLOPURINOL. [Concomitant]
     Active Substance: ALLOPURINOL
     Dosage: 100 MG, UNK
  4. VITAMIN D [Concomitant]
     Active Substance: CHOLECALCIFEROL
     Dosage: 5000 IU, UNK
  5. WARFARIN [Concomitant]
     Active Substance: WARFARIN
     Dosage: 4 MG, UNK
  6. LYRICA [Suspect]
     Active Substance: PREGABALIN
     Indication: NEUROPATHY PERIPHERAL
     Dosage: 50 MG, 2X/DAY
     Dates: start: 201507
  7. LYRICA [Suspect]
     Active Substance: PREGABALIN
     Dosage: 20 MG, 2X/DAY (4TH WEEK)
  8. LOSARTAN. [Concomitant]
     Active Substance: LOSARTAN
     Dosage: 50-125
  9. ALFUZOSIN [Concomitant]
     Active Substance: ALFUZOSIN
     Dosage: 10 MG, UNK
  10. METOPROLOL [Concomitant]
     Active Substance: METOPROLOL
     Dosage: 25 MG, UNK
  11. L-METHYL TAB B6-B12 [Concomitant]
     Dosage: UNK
  12. SIMVASTATIN. [Concomitant]
     Active Substance: SIMVASTATIN
     Dosage: 10 MG, UNK
  13. WARFARIN [Concomitant]
     Active Substance: WARFARIN
     Dosage: 2 MG, UNK
  14. DIGOXIN. [Concomitant]
     Active Substance: DIGOXIN
     Dosage: 0.125 MG, UNK
  15. AMITRIPTYLIN [Concomitant]
     Active Substance: AMITRIPTYLINE
     Dosage: 25 MG, UNK
  16. LYRICA [Suspect]
     Active Substance: PREGABALIN
     Dosage: UNK, 1X/DAY (EVENING)
  17. LYRICA [Suspect]
     Active Substance: PREGABALIN
     Dosage: 20 MG  (MWF EVENING 20 MG; TUESDAY, THURSDAY, SATURDAY, SUNDAY 20 MG)

REACTIONS (4)
  - Balance disorder [Not Recovered/Not Resolved]
  - Dizziness [Not Recovered/Not Resolved]
  - Coordination abnormal [Not Recovered/Not Resolved]
  - General physical health deterioration [Unknown]

NARRATIVE: CASE EVENT DATE: 201507
